FAERS Safety Report 8846552 (Version 2)
Quarter: 2012Q4

REPORT INFORMATION
  Report Type: 
  Country: FR (occurrence: FR)
  Receive Date: 20121017
  Receipt Date: 20121221
  Transmission Date: 20130627
  Serious: Yes (Other)
  Sender: FDA-Public Use
  Company Number: FR-VIIV HEALTHCARE LIMITED-B0836423A

PATIENT
  Age: 42 None
  Sex: Female

DRUGS (10)
  1. TELZIR [Suspect]
     Indication: HIV INFECTION CDC CATEGORY C3
     Route: 048
     Dates: start: 20110328, end: 20120626
  2. VOLIBRIS [Suspect]
     Indication: PULMONARY ARTERIAL HYPERTENSION
     Dosage: 5MG Per day
     Route: 048
     Dates: start: 20120101, end: 20120714
  3. COLCHICINE [Suspect]
     Indication: PRODUCT USED FOR UNKNOWN INDICATION
     Dosage: 1UNIT Twice per day
     Route: 048
     Dates: start: 201204
  4. NORVIR [Suspect]
     Indication: HIV INFECTION CDC CATEGORY C3
     Dosage: 1UNIT Per day
     Route: 048
     Dates: start: 20110308, end: 20120626
  5. SEROPRAM [Concomitant]
     Dosage: 1UNIT Per day
     Route: 048
  6. XANAX [Concomitant]
     Dosage: 1UNIT Per day
     Route: 048
  7. TRUVADA [Concomitant]
     Indication: HIV INFECTION CDC CATEGORY C3
     Route: 048
     Dates: start: 20060823, end: 20120710
  8. STILNOX [Concomitant]
     Dosage: 1UNIT Per day
     Route: 048
  9. PREVISCAN [Concomitant]
     Indication: PULMONARY ARTERIAL HYPERTENSION
     Dosage: .75UNIT Per day
     Route: 048
  10. VIRAMUNE [Concomitant]
     Indication: HIV INFECTION CDC CATEGORY C3
     Dates: start: 20120626, end: 20120710

REACTIONS (4)
  - Anaemia [Recovered/Resolved]
  - Dysgeusia [Recovered/Resolved]
  - Nausea [Recovered/Resolved]
  - Haemolysis [Recovered/Resolved]
